FAERS Safety Report 12665352 (Version 3)
Quarter: 2016Q3

REPORT INFORMATION
  Report Type: Spontaneous
  Country: US (occurrence: US)
  Receive Date: 20160818
  Receipt Date: 20160913
  Transmission Date: 20161109
  Serious: No
  Sender: FDA-Public Use
  Company Number: US-PFIZER INC-2016390779

PATIENT
  Age: 66 Year
  Sex: Female
  Weight: 73.94 kg

DRUGS (4)
  1. LYRICA [Suspect]
     Active Substance: PREGABALIN
     Indication: FIBROMYALGIA
     Dosage: 50 MG, UNK (TOOK 50 MG CAPSULES FOR ONE DAY)
     Route: 048
     Dates: start: 201608
  2. LYRICA [Suspect]
     Active Substance: PREGABALIN
     Indication: LUMBAR RADICULOPATHY
     Dosage: THE NEXT DAY, TOOK 75 MG AND A 50 MG CAPSULES
     Route: 048
     Dates: start: 201608
  3. SIMVASTATIN. [Concomitant]
     Active Substance: SIMVASTATIN
     Indication: BLOOD TRIGLYCERIDES ABNORMAL
     Dosage: UNK
  4. LYRICA [Suspect]
     Active Substance: PREGABALIN
     Dosage: TWO 75 MG CAPSULES IN THE MORNING AND TWO 75MG CAPSULES IN THE EVENING
     Route: 048
     Dates: start: 20160815

REACTIONS (3)
  - Drug ineffective [Not Recovered/Not Resolved]
  - Pain [Unknown]
  - Suspected counterfeit product [Unknown]

NARRATIVE: CASE EVENT DATE: 20160815
